FAERS Safety Report 25960814 (Version 3)
Quarter: 2025Q4

REPORT INFORMATION
  Report Type: Spontaneous
  Country: US (occurrence: US)
  Receive Date: 20251027
  Receipt Date: 20251214
  Transmission Date: 20260117
  Serious: No
  Sender: SANOFI AVENTIS
  Company Number: US-SANOFI-02692621

PATIENT
  Age: 60 Year
  Sex: Female

DRUGS (1)
  1. LANTUS SOLOSTAR [Suspect]
     Active Substance: INSULIN GLARGINE
     Indication: Type 2 diabetes mellitus
     Dosage: 36 IU, QD (EVERY MORNING)

REACTIONS (5)
  - Malaise [Unknown]
  - Confusional state [Unknown]
  - Blood glucose fluctuation [Unknown]
  - Device issue [Unknown]
  - Intentional product misuse [Unknown]
